FAERS Safety Report 21095199 (Version 1)
Quarter: 2022Q3

REPORT INFORMATION
  Report Type: Spontaneous
  Country: US (occurrence: None)
  Receive Date: 20220717
  Receipt Date: 20220717
  Transmission Date: 20221026
  Serious: No
  Sender: FDA-Public Use
  Company Number: None

PATIENT
  Age: 32 Year
  Sex: Female
  Weight: 91.8 kg

DRUGS (1)
  1. SALONPAS PAIN RELIEF [Suspect]
     Active Substance: MENTHOL\METHYL SALICYLATE
     Indication: Myalgia
     Dosage: OTHER QUANTITY : 60 NA;?FREQUENCY : EVERY 8 HOURS;?
     Route: 062
     Dates: start: 20220711, end: 20220716

REACTIONS (3)
  - Application site burn [None]
  - Application site exfoliation [None]
  - Hypersensitivity [None]

NARRATIVE: CASE EVENT DATE: 20220712
